FAERS Safety Report 5627924-1 (Version None)
Quarter: 2008Q1

REPORT INFORMATION
  Report Type: 
  Country: None (occurrence: None)
  Receive Date: 20080215
  Receipt Date: 20080204
  Transmission Date: 20080703
  Serious: Yes (Hospitalization, Other)
  Sender: FDA-Public Use
  Company Number: LV-ROCHE-540831

PATIENT
  Age: 80 Year
  Sex: Female
  Weight: 62 kg

DRUGS (5)
  1. BONIVA [Suspect]
     Indication: OSTEOPOROSIS POSTMENOPAUSAL
     Route: 048
     Dates: start: 20070515
  2. ENALAPRIL MALEATE [Concomitant]
     Indication: HYPERTENSION
     Dosage: DRUG NAME REPORTED AS BERLIPRIL
     Route: 048
  3. DICLOBERL [Concomitant]
     Indication: BACK PAIN
     Route: 048
  4. CALCIUM [Concomitant]
     Dates: end: 20070601
  5. VITAMIN D3 [Concomitant]
     Dates: end: 20070601

REACTIONS (3)
  - ABDOMINAL PAIN [None]
  - FATIGUE [None]
  - HYPOCALCAEMIA [None]
